FAERS Safety Report 23999602 (Version 1)
Quarter: 2024Q2

REPORT INFORMATION
  Report Type: Spontaneous
  Country: US (occurrence: None)
  Receive Date: 20240620
  Receipt Date: 20240620
  Transmission Date: 20240715
  Serious: Yes (Death)
  Sender: FDA-Public Use
  Company Number: None

PATIENT
  Age: 63 Year
  Sex: Female
  Weight: 50 kg

DRUGS (1)
  1. TACROLIMUS [Suspect]
     Active Substance: TACROLIMUS
     Indication: Renal transplant
     Dosage: OTHER QUANTITY : 1MG AM, 2MG PM;?FREQUENCY : TWICE A DAY;?
     Route: 048
     Dates: start: 20121021

REACTIONS (2)
  - Death [None]
  - Disease complication [None]

NARRATIVE: CASE EVENT DATE: 20240619
